FAERS Safety Report 23772553 (Version 2)
Quarter: 2024Q2

REPORT INFORMATION
  Report Type: Report from Study
  Country: US (occurrence: US)
  Receive Date: 20240423
  Receipt Date: 20240524
  Transmission Date: 20240716
  Serious: Yes (Other)
  Sender: FDA-Public Use
  Company Number: US-OTSUKA-2024_011226

PATIENT
  Age: 59 Year
  Sex: Female
  Weight: 76.2 kg

DRUGS (3)
  1. TOLVAPTAN [Suspect]
     Active Substance: TOLVAPTAN
     Indication: Congenital cystic kidney disease
     Dosage: UNK
     Route: 065
     Dates: start: 20220823
  2. TOLVAPTAN [Suspect]
     Active Substance: TOLVAPTAN
     Dosage: 45 MG
     Route: 065
     Dates: start: 202209
  3. TOLVAPTAN [Suspect]
     Active Substance: TOLVAPTAN
     Dosage: 15 MG
     Route: 065
     Dates: start: 202209

REACTIONS (4)
  - Biopsy breast [Recovered/Resolved]
  - Breast cancer [Not Recovered/Not Resolved]
  - Breast conserving surgery [Unknown]
  - Lymphadenectomy [Unknown]

NARRATIVE: CASE EVENT DATE: 20240415
